FAERS Safety Report 22662932 (Version 3)
Quarter: 2024Q1

REPORT INFORMATION
  Report Type: Spontaneous
  Country: BR (occurrence: BR)
  Receive Date: 20230702
  Receipt Date: 20240323
  Transmission Date: 20240409
  Serious: Yes (Hospitalization, Other)
  Sender: FDA-Public Use
  Company Number: BR-ABBVIE-5310759

PATIENT
  Age: 58 Year
  Sex: Female

DRUGS (4)
  1. PHENYLEPHRINE [Suspect]
     Active Substance: PHENYLEPHRINE HYDROCHLORIDE
     Indication: Premedication
     Route: 065
  2. MYDRIACYL [Suspect]
     Active Substance: TROPICAMIDE
     Indication: Premedication
     Route: 065
  3. PHENYLEPHRINE HYDROCHLORIDE\TETRACAINE [Suspect]
     Active Substance: PHENYLEPHRINE HYDROCHLORIDE\TETRACAINE
     Indication: Premedication
     Route: 047
  4. SALINE [Suspect]
     Active Substance: SODIUM CHLORIDE
     Indication: Product used for unknown indication
     Route: 065

REACTIONS (7)
  - Asthmatic crisis [Unknown]
  - Headache [Unknown]
  - Vomiting [Unknown]
  - Hypertension [Unknown]
  - Cataract operation complication [Unknown]
  - Neck pain [Unknown]
  - Blood pressure decreased [Unknown]

NARRATIVE: CASE EVENT DATE: 20230620
